FAERS Safety Report 9567152 (Version 1)
Quarter: 2013Q3

REPORT INFORMATION
  Report Type: Spontaneous
  Country: US (occurrence: US)
  Receive Date: 20130930
  Receipt Date: 20130930
  Transmission Date: 20140515
  Serious: No
  Sender: FDA-Public Use
  Company Number: US-AMGEN-USASP2012061168

PATIENT
  Age: 25 Year
  Sex: Male
  Weight: 124.72 kg

DRUGS (4)
  1. ENBREL [Suspect]
     Indication: PRODUCT USED FOR UNKNOWN INDICATION
     Dosage: 50 MG, QWK
     Route: 058
  2. FISH OIL [Concomitant]
     Dosage: UNK
     Route: 048
  3. CENTRUM                            /02217401/ [Concomitant]
     Dosage: UNK
     Route: 048
  4. MULTIVITAMIN                       /00097801/ [Concomitant]
     Dosage: UNK
     Route: 048

REACTIONS (1)
  - Sinusitis [Unknown]
